FAERS Safety Report 25254245 (Version 1)
Quarter: 2025Q2

REPORT INFORMATION
  Report Type: Report from Study
  Country: CA (occurrence: CA)
  Receive Date: 20250430
  Receipt Date: 20250430
  Transmission Date: 20250717
  Serious: Yes (Other)
  Sender: TAKEDA
  Company Number: CA-TAKEDA-2024TUS076666

PATIENT
  Sex: Female

DRUGS (10)
  1. GLASSIA [Suspect]
     Active Substance: .ALPHA.1-PROTEINASE INHIBITOR HUMAN
     Indication: Alpha-1 antitrypsin deficiency
     Dosage: 4000 MILLIGRAM, 1/WEEK
     Dates: start: 20240606
  2. GLASSIA [Suspect]
     Active Substance: .ALPHA.1-PROTEINASE INHIBITOR HUMAN
     Dosage: 4000 MILLIGRAM, 1/WEEK
  3. GLASSIA [Suspect]
     Active Substance: .ALPHA.1-PROTEINASE INHIBITOR HUMAN
     Dosage: 4000 MILLIGRAM, 1/WEEK
  4. GLASSIA [Suspect]
     Active Substance: .ALPHA.1-PROTEINASE INHIBITOR HUMAN
     Dosage: 4000 MILLIGRAM, 1/WEEK
  5. GLASSIA [Suspect]
     Active Substance: .ALPHA.1-PROTEINASE INHIBITOR HUMAN
     Dosage: 4000 MILLIGRAM, 1/WEEK
  6. GLASSIA [Suspect]
     Active Substance: .ALPHA.1-PROTEINASE INHIBITOR HUMAN
  7. TRELEGY ELLIPTA [Concomitant]
     Active Substance: FLUTICASONE FUROATE\UMECLIDINIUM BROMIDE\VILANTEROL TRIFENATATE
  8. ALBUTEROL [Concomitant]
     Active Substance: ALBUTEROL
  9. AZITHROMYCIN [Concomitant]
     Active Substance: AZITHROMYCIN
  10. PREDNISONE [Concomitant]
     Active Substance: PREDNISONE

REACTIONS (15)
  - Thrombosis [Unknown]
  - Contusion [Not Recovered/Not Resolved]
  - Tenderness [Not Recovered/Not Resolved]
  - Infusion site bruising [Unknown]
  - Product use complaint [Unknown]
  - Product dose omission issue [Unknown]
  - Poor venous access [Unknown]
  - Inappropriate schedule of product administration [Unknown]
  - Infusion site pain [Unknown]
  - Pain [Unknown]
  - Snoring [Unknown]
  - Vasoconstriction [Unknown]
  - Insomnia [Unknown]
  - Feeling abnormal [Unknown]
  - Dyspnoea [Unknown]
